FAERS Safety Report 7233592-8 (Version None)
Quarter: 2011Q1

REPORT INFORMATION
  Report Type: 
  Country: None (occurrence: None)
  Receive Date: 20110119
  Receipt Date: 20100216
  Transmission Date: 20110831
  Serious: No
  Sender: FDA-Public Use
  Company Number: US-PFIZER INC-2010020561

PATIENT
  Sex: Female
  Weight: 49.9 kg

DRUGS (1)
  1. AROMASIN [Suspect]
     Indication: PHARYNGITIS STREPTOCOCCAL
     Dosage: 25 MG, 1X/DAY
     Route: 048
     Dates: start: 20100210, end: 20100201

REACTIONS (2)
  - DRUG DISPENSING ERROR [None]
  - NAUSEA [None]
